FAERS Safety Report 24625769 (Version 2)
Quarter: 2025Q1

REPORT INFORMATION
  Report Type: Spontaneous
  Country: JP (occurrence: JP)
  Receive Date: 20241115
  Receipt Date: 20250206
  Transmission Date: 20250409
  Serious: Yes (Death, Other)
  Sender: OTSUKA
  Company Number: JP-OTSUKA-2024_030587

PATIENT
  Age: 89 Year
  Sex: Female

DRUGS (27)
  1. SAMSCA [Suspect]
     Active Substance: TOLVAPTAN
     Indication: Cardiac failure chronic
     Route: 048
     Dates: start: 202111
  2. SAMSCA [Suspect]
     Active Substance: TOLVAPTAN
     Route: 048
     Dates: start: 202104, end: 202105
  3. SAMSCA [Suspect]
     Active Substance: TOLVAPTAN
     Route: 048
     Dates: start: 202105, end: 202106
  4. SAMSCA [Suspect]
     Active Substance: TOLVAPTAN
     Route: 048
     Dates: start: 202106, end: 202106
  5. SAMSCA [Suspect]
     Active Substance: TOLVAPTAN
     Route: 048
     Dates: start: 202106, end: 202109
  6. SAMSCA [Suspect]
     Active Substance: TOLVAPTAN
     Route: 048
     Dates: start: 202110, end: 202110
  7. SAMSCA [Suspect]
     Active Substance: TOLVAPTAN
     Route: 048
     Dates: start: 202110, end: 202111
  8. FUROSEMIDE [Concomitant]
     Active Substance: FUROSEMIDE
     Indication: Cardiac failure chronic
     Route: 065
     Dates: start: 202104, end: 202105
  9. FUROSEMIDE [Concomitant]
     Active Substance: FUROSEMIDE
     Route: 065
     Dates: start: 202105, end: 202106
  10. FUROSEMIDE [Concomitant]
     Active Substance: FUROSEMIDE
     Route: 065
     Dates: start: 202106, end: 202106
  11. FUROSEMIDE [Concomitant]
     Active Substance: FUROSEMIDE
     Route: 065
     Dates: start: 202106, end: 202107
  12. TORSEMIDE [Concomitant]
     Active Substance: TORSEMIDE
     Indication: Cardiac failure chronic
     Route: 065
     Dates: start: 202107, end: 202110
  13. TORSEMIDE [Concomitant]
     Active Substance: TORSEMIDE
     Route: 065
     Dates: start: 202110, end: 202110
  14. TORSEMIDE [Concomitant]
     Active Substance: TORSEMIDE
     Route: 065
     Dates: start: 202110
  15. SPIRONOLACTONE [Concomitant]
     Active Substance: SPIRONOLACTONE
     Indication: Cardiac failure chronic
     Route: 065
     Dates: start: 202104, end: 202105
  16. SPIRONOLACTONE [Concomitant]
     Active Substance: SPIRONOLACTONE
     Route: 065
     Dates: start: 202105, end: 202106
  17. SPIRONOLACTONE [Concomitant]
     Active Substance: SPIRONOLACTONE
     Route: 065
     Dates: start: 202106, end: 202108
  18. SPIRONOLACTONE [Concomitant]
     Active Substance: SPIRONOLACTONE
     Route: 065
     Dates: start: 202108, end: 202109
  19. SPIRONOLACTONE [Concomitant]
     Active Substance: SPIRONOLACTONE
     Route: 065
     Dates: start: 202111
  20. PIMOBENDAN [Concomitant]
     Active Substance: PIMOBENDAN
     Indication: Cardiac failure chronic
     Route: 065
     Dates: start: 202104
  21. BISOPROLOL FUMARATE [Concomitant]
     Active Substance: BISOPROLOL FUMARATE
     Indication: Cardiac failure chronic
     Route: 065
     Dates: start: 202104, end: 202111
  22. BISOPROLOL FUMARATE [Concomitant]
     Active Substance: BISOPROLOL FUMARATE
     Route: 065
     Dates: start: 202111
  23. LORAZEPAM [Concomitant]
     Active Substance: LORAZEPAM
     Indication: Product used for unknown indication
     Route: 048
     Dates: start: 202110
  24. CODEINE PHOSPHATE [Concomitant]
     Active Substance: CODEINE PHOSPHATE
     Indication: Product used for unknown indication
     Route: 065
     Dates: start: 202105, end: 202106
  25. CODEINE PHOSPHATE [Concomitant]
     Active Substance: CODEINE PHOSPHATE
     Route: 065
     Dates: start: 202106, end: 202110
  26. CODEINE PHOSPHATE [Concomitant]
     Active Substance: CODEINE PHOSPHATE
     Route: 065
     Dates: start: 202110, end: 202111
  27. CODEINE PHOSPHATE [Concomitant]
     Active Substance: CODEINE PHOSPHATE
     Route: 065
     Dates: start: 202111

REACTIONS (5)
  - Death [Fatal]
  - Low cardiac output syndrome [Unknown]
  - Cardiac failure [Unknown]
  - Dehydration [Unknown]
  - Underdose [Unknown]

NARRATIVE: CASE EVENT DATE: 20210101
